FAERS Safety Report 20455095 (Version 1)
Quarter: 2022Q1

REPORT INFORMATION
  Report Type: Report from Study
  Country: JP (occurrence: JP)
  Receive Date: 20220210
  Receipt Date: 20220210
  Transmission Date: 20220423
  Serious: Yes (Hospitalization, Disabling, Other)
  Sender: FDA-Public Use
  Company Number: JP-BRISTOL-MYERS SQUIBB COMPANY-BMS-2020-108615

PATIENT
  Age: 65 Year
  Sex: Female
  Weight: 75.4 kg

DRUGS (19)
  1. NIVOLUMAB [Suspect]
     Active Substance: NIVOLUMAB
     Indication: Non-small cell lung cancer recurrent
     Dosage: 120 MILLIGRAM, Q3WK
     Route: 041
     Dates: start: 20201207, end: 20201207
  2. NIVOLUMAB [Suspect]
     Active Substance: NIVOLUMAB
     Dosage: 120 MILLIGRAM, Q3WK
     Route: 041
     Dates: start: 20201228, end: 20201228
  3. NIVOLUMAB [Suspect]
     Active Substance: NIVOLUMAB
     Dosage: 120 MILLIGRAM, Q3WK
     Route: 041
     Dates: start: 20210118, end: 20210118
  4. NIVOLUMAB [Suspect]
     Active Substance: NIVOLUMAB
     Dosage: 120 MILLIGRAM, Q3WK
     Route: 041
     Dates: start: 20210208, end: 20210208
  5. NIVOLUMAB [Suspect]
     Active Substance: NIVOLUMAB
     Dosage: 120 MILLIGRAM, Q3WK
     Route: 041
     Dates: start: 20210301, end: 20210301
  6. NIVOLUMAB [Suspect]
     Active Substance: NIVOLUMAB
     Dosage: 120 MILLIGRAM, Q3WK
     Route: 041
     Dates: start: 20210322, end: 20210322
  7. NIVOLUMAB [Suspect]
     Active Substance: NIVOLUMAB
     Dosage: 120 MILLIGRAM, Q3WK
     Route: 041
     Dates: start: 20210412, end: 20210412
  8. NIVOLUMAB [Suspect]
     Active Substance: NIVOLUMAB
     Dosage: 120 MILLIGRAM, Q3WK
     Route: 041
     Dates: start: 20210510, end: 20210531
  9. NIVOLUMAB [Suspect]
     Active Substance: NIVOLUMAB
     Dosage: 120 MILLIGRAM, Q3WK
     Route: 041
     Dates: start: 20210621, end: 20210621
  10. NIVOLUMAB [Suspect]
     Active Substance: NIVOLUMAB
     Dosage: 120 MILLIGRAM, Q3WK
     Route: 041
  11. NIVOLUMAB [Suspect]
     Active Substance: NIVOLUMAB
     Dosage: 120 MILLIGRAM, Q3WK
     Route: 041
     Dates: start: 20210712, end: 20210712
  12. IPILIMUMAB [Suspect]
     Active Substance: IPILIMUMAB
     Indication: Non-small cell lung cancer recurrent
     Dosage: 1 MILLIGRAM/KILOGRAM, Q6WK
     Route: 041
     Dates: start: 20201207, end: 20201207
  13. IPILIMUMAB [Suspect]
     Active Substance: IPILIMUMAB
     Dosage: 1 MILLIGRAM/KILOGRAM, Q6WK
     Route: 041
     Dates: start: 20210118, end: 20210118
  14. IPILIMUMAB [Suspect]
     Active Substance: IPILIMUMAB
     Dosage: 1 MILLIGRAM/KILOGRAM, Q6WK
     Route: 041
     Dates: start: 20210301, end: 20210301
  15. IPILIMUMAB [Suspect]
     Active Substance: IPILIMUMAB
     Dosage: 1 MILLIGRAM/KILOGRAM, Q6WK
     Route: 041
     Dates: start: 20210531, end: 20210531
  16. IPILIMUMAB [Suspect]
     Active Substance: IPILIMUMAB
     Dosage: 1 MILLIGRAM/KILOGRAM, Q6WK
     Route: 041
  17. IPILIMUMAB [Suspect]
     Active Substance: IPILIMUMAB
     Dosage: 1 MILLIGRAM/KILOGRAM, Q6WK
     Route: 041
     Dates: start: 20210712, end: 20210712
  18. CALONAL [Suspect]
     Active Substance: ACETAMINOPHEN
     Indication: Cancer pain
     Dosage: UNK
     Route: 065
     Dates: start: 2016, end: 20210120
  19. PREDNISOLONE [Suspect]
     Active Substance: PREDNISOLONE
     Indication: Rash
     Dosage: 30 MILLIGRAM
     Route: 048
     Dates: start: 20211101

REACTIONS (7)
  - Adrenal insufficiency [Not Recovered/Not Resolved]
  - Hypothyroidism [Not Recovered/Not Resolved]
  - Hyperthyroidism [Not Recovered/Not Resolved]
  - Type 2 diabetes mellitus [Recovering/Resolving]
  - Rash maculo-papular [Not Recovered/Not Resolved]
  - Condition aggravated [Not Recovered/Not Resolved]
  - Rash [Unknown]

NARRATIVE: CASE EVENT DATE: 20201211
